FAERS Safety Report 12979395 (Version 1)
Quarter: 2016Q4

REPORT INFORMATION
  Report Type: Spontaneous
  Country: US (occurrence: US)
  Receive Date: 20161128
  Receipt Date: 20161128
  Transmission Date: 20170207
  Serious: No
  Sender: FDA-Public Use
  Company Number: US-GLAXOSMITHKLINE-US2016173181

PATIENT
  Age: 31 Year
  Sex: Male

DRUGS (2)
  1. NICODERM CQ [Suspect]
     Active Substance: NICOTINE
     Indication: SMOKING CESSATION THERAPY
     Dosage: UNK
     Dates: start: 20161114
  2. NICODERM CQ [Suspect]
     Active Substance: NICOTINE
     Indication: TOBACCO USER

REACTIONS (3)
  - Drug ineffective [Unknown]
  - Product use issue [Unknown]
  - Nicotine dependence [Unknown]
